FAERS Safety Report 7797856-1 (Version None)
Quarter: 2011Q4

REPORT INFORMATION
  Report Type: 
  Country: None (occurrence: None)
  Receive Date: 20111005
  Receipt Date: 20110930
  Transmission Date: 20120403
  Serious: Yes (Hospitalization, Other)
  Sender: FDA-Public Use
  Company Number: US-BRISTOL-MYERS SQUIBB COMPANY-16067381

PATIENT
  Age: 60 Year
  Sex: Female
  Weight: 74 kg

DRUGS (3)
  1. CARBOPLATIN [Suspect]
     Indication: ENDOMETRIAL CANCER
     Dosage: LAST DOSE 20JUL11
     Route: 042
     Dates: start: 20110302
  2. RHUMAB-VEGF [Suspect]
     Indication: ENDOMETRIAL CANCER
     Dosage: LAST DOSE 20JUL11
     Route: 042
     Dates: start: 20110302
  3. IXEMPRA KIT [Suspect]
     Indication: ENDOMETRIAL CANCER
     Dosage: LAST DOSE 20JUL11
     Route: 042
     Dates: start: 20110302

REACTIONS (5)
  - DYSPNOEA [None]
  - DECREASED APPETITE [None]
  - ARTHRALGIA [None]
  - FATIGUE [None]
  - PAIN IN EXTREMITY [None]
